FAERS Safety Report 7756557-6 (Version None)
Quarter: 2011Q3

REPORT INFORMATION
  Report Type: 
  Country: None (occurrence: None)
  Receive Date: 20110916
  Receipt Date: 20110909
  Transmission Date: 20111222
  Serious: Yes (Other)
  Sender: FDA-Public Use
  Company Number: ES-JNJFOC-20110904507

PATIENT
  Age: 54 Year
  Sex: Male
  Weight: 80 kg

DRUGS (3)
  1. RIFALDIN [Concomitant]
     Indication: TUBERCULOSIS
     Dates: start: 20100901, end: 20110201
  2. METHOTREXATE [Concomitant]
     Indication: PSORIASIS
  3. STELARA [Suspect]
     Indication: PSORIASIS
     Route: 058
     Dates: start: 20100901, end: 20110711

REACTIONS (1)
  - RECTAL CANCER [None]
